FAERS Safety Report 16394096 (Version 2)
Quarter: 2019Q2

REPORT INFORMATION
  Report Type: Report from Study
  Country: US (occurrence: US)
  Receive Date: 20190605
  Receipt Date: 20190628
  Transmission Date: 20190711
  Serious: Yes (Death, Hospitalization, Other)
  Sender: FDA-Public Use
  Company Number: US-TAIHO ONCOLOGY  INC-EU-2019-01839

PATIENT
  Age: 71 Year
  Sex: Female
  Weight: 83.99 kg

DRUGS (38)
  1. METFORMIN [Concomitant]
     Active Substance: METFORMIN HYDROCHLORIDE
     Dosage: NI
  2. CARVEDILOL. [Concomitant]
     Active Substance: CARVEDILOL
     Dosage: WITH AM/PM MEALS
     Route: 048
  3. MELATONIN [Concomitant]
     Active Substance: MELATONIN
     Dosage: AT BEDTIME
     Route: 048
  4. ONDANSETRON [Concomitant]
     Active Substance: ONDANSETRON
     Indication: VOMITING
  5. OXYCODONE [Concomitant]
     Active Substance: OXYCODONE
     Indication: PAIN
     Dosage: IMMEDIATE RELEASE
     Route: 048
  6. VITAMIN C [Concomitant]
     Active Substance: ASCORBIC ACID
     Dosage: NI
  7. TRAMADOL. [Concomitant]
     Active Substance: TRAMADOL
     Dosage: NI
  8. SERTRALINE [Concomitant]
     Active Substance: SERTRALINE HYDROCHLORIDE
  9. LYRICA [Concomitant]
     Active Substance: PREGABALIN
     Route: 048
  10. MIRALAX [Concomitant]
     Active Substance: POLYETHYLENE GLYCOL 3350
     Route: 048
  11. DOCUSATE-SENNA [Concomitant]
     Dosage: DOCUSATE-SENNA 50 MG-8.6 MG ORAL TABLET
     Route: 048
  12. ASPIRIN. [Concomitant]
     Active Substance: ASPIRIN
     Route: 048
  13. ALBUTEROL. [Concomitant]
     Active Substance: ALBUTEROL
     Dosage: 2 PUFF(S) INHALATION EVERY 6 HOURS WHILE AWAKE.
  14. MORPHINE [Concomitant]
     Active Substance: MORPHINE
     Indication: PAIN
     Dosage: 4MG/ML PRESERVATIVE-FREE INJECTABLE SOLUTION. ?PRN
     Route: 042
  15. ONDANSETRON [Concomitant]
     Active Substance: ONDANSETRON
     Indication: NAUSEA
     Dosage: PRN
     Route: 048
  16. PROMETHAZINE [Concomitant]
     Active Substance: PROMETHAZINE\PROMETHAZINE HYDROCHLORIDE
     Indication: VOMITING
  17. LONSURF [Suspect]
     Active Substance: TIPIRACIL HYDROCHLORIDE\TRIFLURIDINE
     Indication: COLON CANCER
     Dosage: THERAPY START DATE UNKNOWN?CURRENT CYCLE 14.
     Route: 048
     Dates: start: 20180611
  18. VITAMIN B12 [Concomitant]
     Active Substance: CYANOCOBALAMIN
     Dosage: NI
  19. ATIVAN [Concomitant]
     Active Substance: LORAZEPAM
     Dosage: NI
  20. MAALOX PLUS EXTRA STRENGTH [Concomitant]
     Indication: DYSPEPSIA
     Dosage: PRN
     Route: 048
  21. VITAMIN E [Concomitant]
     Active Substance: .ALPHA.-TOCOPHEROL
     Dosage: NI
  22. FISH OIL [Concomitant]
     Active Substance: FISH OIL
     Dosage: NI
  23. METHOCARBAMOL. [Concomitant]
     Active Substance: METHOCARBAMOL
     Indication: MUSCLE SPASMS
     Dosage: PRN
     Route: 048
  24. AZITHROMYCIN ANHYDROUS. [Concomitant]
     Active Substance: AZITHROMYCIN ANHYDROUS
     Route: 048
  25. LOMOTIL [Concomitant]
     Active Substance: ATROPINE SULFATE\DIPHENOXYLATE HYDROCHLORIDE
     Indication: DIARRHOEA
     Dosage: PRN
     Route: 048
  26. DIPHENHYDRAMINE. [Concomitant]
     Active Substance: DIPHENHYDRAMINE
     Indication: PRURITUS
     Dosage: 12.5/5ML ORAL LIQUID.
     Route: 048
  27. ENOXAPARIN [Concomitant]
     Active Substance: ENOXAPARIN
     Route: 058
  28. LASIX [Concomitant]
     Active Substance: FUROSEMIDE
     Route: 042
  29. ZOFRAN [Concomitant]
     Active Substance: ONDANSETRON HYDROCHLORIDE
     Dosage: ODT, DISINTEGRATING
     Route: 048
  30. DOCUSATE [Concomitant]
     Active Substance: DOCUSATE
     Dosage: NI
  31. CLONIDINE. [Concomitant]
     Active Substance: CLONIDINE
     Route: 048
  32. PROMETHAZINE [Concomitant]
     Active Substance: PROMETHAZINE\PROMETHAZINE HYDROCHLORIDE
     Indication: NAUSEA
     Dosage: EVERY 6 HOURS AS NEEDED
     Route: 042
  33. NIFEDIPINE. [Concomitant]
     Active Substance: NIFEDIPINE
     Dosage: EXTENDED RELEASE
     Route: 048
  34. LIDOCAINE. [Concomitant]
     Active Substance: LIDOCAINE
     Dosage: 2 PATCHES TOPICAL DAILY
     Route: 061
  35. SODIUM CHLORIDE. [Concomitant]
     Active Substance: SODIUM CHLORIDE
     Dosage: 1 GRAM BY MOUTH WITH MEALS.
     Route: 048
  36. ATORVASTATIN [Concomitant]
     Active Substance: ATORVASTATIN
     Route: 048
  37. CEFDINIR. [Concomitant]
     Active Substance: CEFDINIR
     Route: 048
  38. OXYCONTIN [Concomitant]
     Active Substance: OXYCODONE HYDROCHLORIDE
     Dosage: EXTENDED RELEASE
     Route: 048

REACTIONS (7)
  - Disease progression [Fatal]
  - Pneumonia [Unknown]
  - Oedema peripheral [Unknown]
  - Dyspnoea [Not Recovered/Not Resolved]
  - Productive cough [Unknown]
  - Pain [Unknown]
  - Malignant pleural effusion [Unknown]

NARRATIVE: CASE EVENT DATE: 201905
